FAERS Safety Report 6413783-6 (Version None)
Quarter: 2009Q4

REPORT INFORMATION
  Report Type: 
  Country: None (occurrence: None)
  Receive Date: 20091026
  Receipt Date: 20091019
  Transmission Date: 20100525
  Serious: Yes (Other)
  Sender: FDA-Public Use
  Company Number: CA-BAYER-200936653NA

PATIENT
  Age: 60 Year
  Sex: Male

DRUGS (3)
  1. AVELOX [Suspect]
     Indication: DRUG USE FOR UNKNOWN INDICATION
     Dates: start: 20090930
  2. DESYREL [Concomitant]
     Indication: ANTIDEPRESSANT THERAPY
  3. CELEXA [Concomitant]
     Indication: ANTIDEPRESSANT THERAPY

REACTIONS (1)
  - AMNESIA [None]
